FAERS Safety Report 7763179-X (Version None)
Quarter: 2011Q3

REPORT INFORMATION
  Report Type: 
  Country: None (occurrence: None)
  Receive Date: 20110920
  Receipt Date: 20110913
  Transmission Date: 20111222
  Serious: Yes (Other)
  Sender: FDA-Public Use
  Company Number: PHHY2011BR81964

PATIENT
  Sex: Female

DRUGS (1)
  1. ESTRADERM [Suspect]
     Dosage: UNK UKN, UNK
     Route: 064

REACTIONS (2)
  - PREMATURE BABY [None]
  - MATERNAL EXPOSURE DURING PREGNANCY [None]
